FAERS Safety Report 5337083-0 (Version None)
Quarter: 2007Q2

REPORT INFORMATION
  Report Type: 
  Country: None (occurrence: None)
  Receive Date: 20070529
  Receipt Date: 20070517
  Transmission Date: 20071010
  Serious: Yes (Hospitalization)
  Sender: FDA-Public Use
  Company Number: US-ELI_LILLY_AND_COMPANY-US200705005427

PATIENT
  Age: 75 Year
  Sex: Female

DRUGS (2)
  1. CYMBALTA [Suspect]
     Dosage: 30 MG, UNK
     Dates: start: 20070401, end: 20070501
  2. ZOLOFT [Concomitant]
     Dosage: UNK MG, UNK

REACTIONS (2)
  - CRYING [None]
  - SUICIDAL IDEATION [None]
